FAERS Safety Report 17694945 (Version 4)
Quarter: 2022Q2

REPORT INFORMATION
  Report Type: Spontaneous
  Country: US (occurrence: US)
  Receive Date: 20200422
  Receipt Date: 20220420
  Transmission Date: 20220720
  Serious: Yes (Other)
  Sender: FDA-Public Use
  Company Number: US-GILEAD-2020-0460526

PATIENT
  Age: 52 Year
  Sex: Male

DRUGS (4)
  1. VIREAD [Suspect]
     Active Substance: TENOFOVIR DISOPROXIL FUMARATE
     Indication: HIV infection
     Dosage: UNK
     Route: 048
     Dates: start: 2014, end: 2019
  2. TRUVADA [Suspect]
     Active Substance: EMTRICITABINE\TENOFOVIR DISOPROXIL FUMARATE
     Indication: HIV infection
     Dosage: UNK
     Route: 048
     Dates: start: 20141010, end: 2015
  3. TRUVADA [Suspect]
     Active Substance: EMTRICITABINE\TENOFOVIR DISOPROXIL FUMARATE
     Dosage: UNK
     Route: 048
     Dates: start: 20120227, end: 201803
  4. BIKTARVY [Concomitant]
     Active Substance: BICTEGRAVIR SODIUM\EMTRICITABINE\TENOFOVIR ALAFENAMIDE FUMARATE

REACTIONS (4)
  - Chronic kidney disease [Not Recovered/Not Resolved]
  - Renal failure [Not Recovered/Not Resolved]
  - Skeletal injury [Unknown]
  - Nephropathy [Not Recovered/Not Resolved]

NARRATIVE: CASE EVENT DATE: 20140701
